FAERS Safety Report 4309785-6 (Version None)
Quarter: 2004Q1

REPORT INFORMATION
  Report Type: 
  Country: None (occurrence: None)
  Receive Date: 20040301
  Receipt Date: 20040219
  Transmission Date: 20041129
  Serious: Yes (Death)
  Sender: FDA-Public Use
  Company Number: JP-JNJFOC-20040202761

PATIENT
  Age: 80 Year
  Sex: Female
  Weight: 55 kg

DRUGS (6)
  1. REMICADE [Suspect]
     Indication: RHEUMATOID ARTHRITIS
     Dosage: SEE IMAGE
     Route: 041
     Dates: start: 20030918, end: 20030918
  2. REMICADE [Suspect]
     Indication: RHEUMATOID ARTHRITIS
     Dosage: SEE IMAGE
     Route: 041
     Dates: start: 20031001, end: 20031001
  3. REMICADE [Suspect]
     Indication: RHEUMATOID ARTHRITIS
     Dosage: SEE IMAGE
     Route: 041
     Dates: start: 20031029, end: 20031029
  4. RHEUMATREX [Suspect]
     Dosage: SEE IMAGE
     Route: 048
     Dates: start: 20011221, end: 20020709
  5. RHEUMATREX [Suspect]
     Dosage: SEE IMAGE
     Route: 048
     Dates: start: 20020709, end: 20031210
  6. PREDNISOLONE [Suspect]
     Dosage: 5 MG,  IN 1 DAY, ORAL
     Route: 048

REACTIONS (10)
  - CYSTITIS ESCHERICHIA [None]
  - CYSTITIS KLEBSIELLA [None]
  - DEPRESSED LEVEL OF CONSCIOUSNESS [None]
  - DIARRHOEA [None]
  - DRUG INTERACTION [None]
  - DYSPNOEA [None]
  - MYDRIASIS [None]
  - PYREXIA [None]
  - RESUSCITATION [None]
  - STREPTOCOCCAL SEPSIS [None]
